FAERS Safety Report 8185395-8 (Version None)
Quarter: 2012Q1

REPORT INFORMATION
  Report Type: 
  Country: None (occurrence: None)
  Receive Date: 20120305
  Receipt Date: 20120301
  Transmission Date: 20120608
  Serious: Yes (Hospitalization, Other)
  Sender: FDA-Public Use
  Company Number: PHHY2011RO72689

PATIENT
  Sex: Male

DRUGS (6)
  1. VITAMIN B-12 [Concomitant]
  2. INSULIN [Concomitant]
  3. VITAMIN B1 TAB [Concomitant]
     Dosage: UNK UKN, UNK
  4. VITAMIN B6 [Concomitant]
  5. EXTAVIA [Suspect]
     Indication: MULTIPLE SCLEROSIS
     Dosage: 250 UG, QOD
     Route: 058
     Dates: start: 20090601
  6. SOLU-MEDROL [Concomitant]
     Dosage: UNK UKN, UNK

REACTIONS (3)
  - TYPE 1 DIABETES MELLITUS [None]
  - MULTIPLE SCLEROSIS RELAPSE [None]
  - BLOOD GLUCOSE INCREASED [None]
